FAERS Safety Report 5699913-2 (Version None)
Quarter: 2008Q2

REPORT INFORMATION
  Report Type: 
  Country: None (occurrence: None)
  Receive Date: 20080410
  Receipt Date: 20080401
  Transmission Date: 20081010
  Serious: Yes (Other)
  Sender: FDA-Public Use
  Company Number: US-MERCK-0804USA00875

PATIENT
  Age: 9 Year
  Sex: Male

DRUGS (5)
  1. SINGULAIR [Suspect]
     Indication: ASTHMA
     Route: 048
     Dates: start: 20071127
  2. PULMICORT [Concomitant]
     Route: 065
  3. NASONEX [Concomitant]
     Route: 065
  4. PROAIR HFA [Concomitant]
     Route: 065
  5. SINGULAIR [Suspect]
     Route: 048
     Dates: start: 20060101, end: 20071126

REACTIONS (3)
  - AGGRESSION [None]
  - OVERDOSE [None]
  - SUICIDAL IDEATION [None]
